FAERS Safety Report 21562857 (Version 5)
Quarter: 2023Q1

REPORT INFORMATION
  Report Type: Report from Study
  Country: US (occurrence: US)
  Receive Date: 20221107
  Receipt Date: 20230216
  Transmission Date: 20230417
  Serious: Yes (Hospitalization)
  Sender: FDA-Public Use
  Company Number: US-BIOGEN-2022BI01167302

PATIENT
  Age: 73 Year
  Sex: Male

DRUGS (1)
  1. TYSABRI [Suspect]
     Active Substance: NATALIZUMAB
     Indication: Multiple sclerosis
     Dosage: INFUSED OVER 1 HOUR
     Route: 050
     Dates: start: 20061122

REACTIONS (1)
  - Empyema [Recovered/Resolved]

NARRATIVE: CASE EVENT DATE: 20220917
